FAERS Safety Report 10052632 (Version 1)
Quarter: 2014Q2

REPORT INFORMATION
  Report Type: Spontaneous
  Country: CN (occurrence: CN)
  Receive Date: 20140402
  Receipt Date: 20140402
  Transmission Date: 20141212
  Serious: Yes (Other)
  Sender: FDA-Public Use
  Company Number: CN-ABBVIE-14P-035-1219659-00

PATIENT
  Age: 13 Year
  Sex: Male

DRUGS (3)
  1. DEPAKINE CHRONO [Suspect]
     Indication: EPILEPSY
     Route: 048
     Dates: start: 20130618
  2. DEPAKINE CHRONO [Suspect]
     Route: 048
     Dates: start: 20140120
  3. TOPAMAX [Concomitant]
     Indication: PRODUCT USED FOR UNKNOWN INDICATION
     Dates: start: 201307

REACTIONS (4)
  - Wrong technique in drug usage process [Unknown]
  - Epilepsy [Recovered/Resolved]
  - Eye movement disorder [Recovered/Resolved]
  - Epilepsy [Recovered/Resolved]
